FAERS Safety Report 7513014-X (Version None)
Quarter: 2011Q2

REPORT INFORMATION
  Report Type: 
  Country: None (occurrence: None)
  Receive Date: 20110525
  Receipt Date: 20110525
  Transmission Date: 20111010
  Serious: Yes (Other)
  Sender: FDA-Public Use
  Company Number: None

PATIENT
  Age: 47 Year
  Sex: Female
  Weight: 90.7194 kg

DRUGS (1)
  1. REGLAN [Suspect]
     Indication: DYSPEPSIA
     Dosage: ONE TIME IV
     Route: 042

REACTIONS (2)
  - HYPERSENSITIVITY [None]
  - DYSPNOEA [None]
